APPROVED DRUG PRODUCT: DEXTROAMPHETAMINE SULFATE
Active Ingredient: DEXTROAMPHETAMINE SULFATE
Strength: 20MG
Dosage Form/Route: TABLET;ORAL
Application: A212160 | Product #006 | TE Code: AA
Applicant: WINDER LABORATOIRIES LLC
Approved: Jun 7, 2021 | RLD: No | RS: No | Type: RX